FAERS Safety Report 16025368 (Version 1)
Quarter: 2019Q1

REPORT INFORMATION
  Report Type: Spontaneous
  Country: US (occurrence: US)
  Receive Date: 20190301
  Receipt Date: 20190301
  Transmission Date: 20190418
  Serious: Yes (Hospitalization)
  Sender: FDA-Public Use
  Company Number: US-RIGEL PHARMACEUTICALS, INC.-2019FOS000093

PATIENT

DRUGS (1)
  1. TAVALISSE [Suspect]
     Active Substance: FOSTAMATINIB
     Indication: CHRONIC MYELOMONOCYTIC LEUKAEMIA
     Dosage: 100 MG, QD
     Route: 048
     Dates: start: 20190213, end: 201902

REACTIONS (7)
  - Platelet count decreased [Not Recovered/Not Resolved]
  - Bone marrow failure [Not Recovered/Not Resolved]
  - Off label use [Not Recovered/Not Resolved]
  - Intentional product misuse [Not Recovered/Not Resolved]
  - Atrial fibrillation [Not Recovered/Not Resolved]
  - Flatulence [Not Recovered/Not Resolved]
  - Blood pressure decreased [Not Recovered/Not Resolved]

NARRATIVE: CASE EVENT DATE: 201902
